FAERS Safety Report 18275953 (Version 4)
Quarter: 2021Q2

REPORT INFORMATION
  Report Type: Other
  Country: US (occurrence: US)
  Receive Date: 20200916
  Receipt Date: 20210610
  Transmission Date: 20210717
  Serious: Yes (Other)
  Sender: FDA-Public Use
  Company Number: US-ROCHE-2674896

PATIENT

DRUGS (1)
  1. OCRELIZUMAB. [Suspect]
     Active Substance: OCRELIZUMAB
     Indication: RELAPSING-REMITTING MULTIPLE SCLEROSIS
     Dosage: TWO HALF?DOSE 300 MG INTRAVENOUS (IV) INFUSIONS ON DAY 1 AND DAY 15, THEN RECEIVED 600 MG IV INFUSIO
     Route: 042

REACTIONS (10)
  - Viral infection [Unknown]
  - Babesiosis [Unknown]
  - Hypogammaglobulinaemia [Unknown]
  - Lymphopenia [Unknown]
  - Oral herpes [Unknown]
  - Agranulocytosis [Unknown]
  - Blood immunoglobulin M decreased [Unknown]
  - Infusion related reaction [Unknown]
  - Lichen planus [Unknown]
  - Herpes zoster [Unknown]
